FAERS Safety Report 5623947-7 (Version None)
Quarter: 2008Q1

REPORT INFORMATION
  Report Type: 
  Country: None (occurrence: None)
  Receive Date: 20080204
  Receipt Date: 20080118
  Transmission Date: 20080703
  Serious: Yes (Other)
  Sender: FDA-Public Use
  Company Number: THYM-1000493

PATIENT

DRUGS (2)
  1. THYMOGLOBULIN [Suspect]
     Indication: PROPHYLAXIS AGAINST TRANSPLANT REJECTION
     Dosage: 1.5 MG/KG, INTRAVENOUS
     Route: 042
     Dates: start: 20071229, end: 20071231
  2. THYMOGLOBULIN [Suspect]

REACTIONS (2)
  - LIVER TRANSPLANT REJECTION [None]
  - LYMPHOCYTE COUNT DECREASED [None]
